FAERS Safety Report 5002510-5 (Version None)
Quarter: 2006Q2

REPORT INFORMATION
  Report Type: 
  Country: None (occurrence: None)
  Receive Date: 20060510
  Receipt Date: 20060424
  Transmission Date: 20061013
  Serious: Yes (Hospitalization)
  Sender: FDA-Public Use
  Company Number: CHF-20060101

PATIENT
  Age: 1 Day
  Sex: Male

DRUGS (1)
  1. CUROSURF [Suspect]
     Dosage: MG, INTRATRACHEAL
     Route: 039

REACTIONS (2)
  - PULMONARY HYPERTENSION [None]
  - RESPIRATORY FAILURE [None]
